FAERS Safety Report 7544195-X (Version None)
Quarter: 2011Q2

REPORT INFORMATION
  Report Type: 
  Country: None (occurrence: None)
  Receive Date: 20110613
  Receipt Date: 20061106
  Transmission Date: 20111010
  Serious: Yes (Hospitalization, Other)
  Sender: FDA-Public Use
  Company Number: PHFR2006GB02735

PATIENT
  Sex: Male

DRUGS (2)
  1. ANTIBIOTICS [Concomitant]
     Indication: LOWER RESPIRATORY TRACT INFECTION
  2. CLOZAPINE [Suspect]
     Indication: SCHIZOPHRENIA
     Dosage: 500MG DAILY
     Route: 048
     Dates: start: 19970501

REACTIONS (12)
  - DEPRESSED MOOD [None]
  - PRURITUS [None]
  - WEIGHT DECREASED [None]
  - SYNCOPE [None]
  - SALIVARY HYPERSECRETION [None]
  - SKIN INFECTION [None]
  - ANXIETY [None]
  - HYPERHIDROSIS [None]
  - MALAISE [None]
  - CONSTIPATION [None]
  - LOWER RESPIRATORY TRACT INFECTION [None]
  - INCONTINENCE [None]
